FAERS Safety Report 8212676-1 (Version None)
Quarter: 2012Q1

REPORT INFORMATION
  Report Type: 
  Country: None (occurrence: None)
  Receive Date: 20120315
  Receipt Date: 20120307
  Transmission Date: 20120608
  Serious: Yes (Other)
  Sender: FDA-Public Use
  Company Number: DE-JNJFOC-20120305240

PATIENT
  Age: 27 Year
  Sex: Female

DRUGS (1)
  1. REMICADE [Suspect]
     Indication: ANKYLOSING SPONDYLITIS
     Route: 042
     Dates: start: 20120224, end: 20120224

REACTIONS (5)
  - DYSPNOEA [None]
  - TENSION [None]
  - ERYTHEMA [None]
  - SWELLING FACE [None]
  - INFUSION RELATED REACTION [None]
